FAERS Safety Report 7933620-8 (Version None)
Quarter: 2011Q4

REPORT INFORMATION
  Report Type: 
  Country: None (occurrence: None)
  Receive Date: 20111122
  Receipt Date: 20111109
  Transmission Date: 20120403
  Serious: Yes (Other)
  Sender: FDA-Public Use
  Company Number: PHHY2011BR88517

PATIENT
  Sex: Female

DRUGS (1)
  1. EXFORGE [Suspect]
     Dosage: UNK UKN, UNK

REACTIONS (4)
  - EMOTIONAL DISORDER [None]
  - OVARIAN CANCER [None]
  - PAIN [None]
  - BLOOD PRESSURE ABNORMAL [None]
